FAERS Safety Report 11805093 (Version 2)
Quarter: 2015Q4

REPORT INFORMATION
  Report Type: Spontaneous
  Country: BR (occurrence: BR)
  Receive Date: 20151206
  Receipt Date: 20151212
  Transmission Date: 20160305
  Serious: Yes (Disabling)
  Sender: FDA-Public Use
  Company Number: BR-ASTRAZENECA-2015SF22166

PATIENT
  Age: 69 Year
  Sex: Female
  Weight: 97.5 kg

DRUGS (10)
  1. DAPAGLIFLOZIN [Suspect]
     Active Substance: DAPAGLIFLOZIN
     Route: 048
  2. VILDAGLIPTIN+METFORMIN [Concomitant]
     Dosage: 50/850MG, TWO TIMES A DAY
  3. COVERSYL [Concomitant]
     Active Substance: PERINDOPRIL
     Indication: HYPERTENSION
  4. METFORMIN HYDROCHLORIDE. [Concomitant]
     Active Substance: METFORMIN HYDROCHLORIDE
     Dosage: 850 MG 2X/DAY
  5. GLICLAZIDE [Concomitant]
     Active Substance: GLICLAZIDE
  6. ASA [Concomitant]
     Active Substance: ASPIRIN
     Indication: HYPERTENSION
  7. ROSUVASTATIN [Suspect]
     Active Substance: ROSUVASTATIN
     Route: 048
  8. LEVEMIR [Concomitant]
     Active Substance: INSULIN DETEMIR
     Indication: TYPE 2 DIABETES MELLITUS
  9. SIMVASTATIN. [Concomitant]
     Active Substance: SIMVASTATIN
     Indication: DYSLIPIDAEMIA
  10. ALLOPURINOL. [Concomitant]
     Active Substance: ALLOPURINOL
     Indication: HYPERURICAEMIA

REACTIONS (4)
  - Humerus fracture [Unknown]
  - Muscle strain [Unknown]
  - Weight decreased [Unknown]
  - Fall [Unknown]
